FAERS Safety Report 9169239 (Version 2)
Quarter: 2013Q2

REPORT INFORMATION
  Report Type: Spontaneous
  Country: US (occurrence: US)
  Receive Date: 20130318
  Receipt Date: 20130423
  Transmission Date: 20140414
  Serious: No
  Sender: FDA-Public Use
  Company Number: US-ASTRAZENECA-2013SE15136

PATIENT
  Age: 71 Year
  Sex: Female
  Weight: 74.8 kg

DRUGS (7)
  1. NEXIUM [Suspect]
     Indication: GASTROOESOPHAGEAL REFLUX DISEASE
     Route: 048
     Dates: start: 2001
  2. NEXIUM [Suspect]
     Indication: GASTROOESOPHAGEAL REFLUX DISEASE
     Route: 048
  3. AMLODIPINE [Concomitant]
     Indication: HYPERTENSION
     Route: 048
     Dates: start: 2003
  4. PROBIOTIC [Concomitant]
     Indication: GASTROINTESTINAL DISORDER
     Dates: start: 2010
  5. VITAMIN D [Concomitant]
     Indication: VITAMIN D DECREASED
  6. FOLBIC [Concomitant]
     Indication: VITAMIN B6 DECREASED
  7. FOLBIC [Concomitant]
     Indication: VITAMIN B12 DECREASED

REACTIONS (5)
  - Hypertension [Unknown]
  - Dyspepsia [Unknown]
  - Vitamin B6 decreased [Unknown]
  - Vitamin B12 decreased [Unknown]
  - Vitamin D decreased [Unknown]
